FAERS Safety Report 24705887 (Version 1)
Quarter: 2024Q4

REPORT INFORMATION
  Report Type: Other
  Country: ES (occurrence: ES)
  Receive Date: 20241206
  Receipt Date: 20241206
  Transmission Date: 20250115
  Serious: Yes (Life-Threatening, Hospitalization)
  Sender: B BRAUN
  Company Number: ES-B.Braun Medical Inc.-2166550

PATIENT
  Age: 5 Year
  Sex: Female

DRUGS (7)
  1. MEROPENEM [Suspect]
     Active Substance: MEROPENEM
     Indication: Neutropenic colitis
  2. CEFEPIME [Suspect]
     Active Substance: CEFEPIME HYDROCHLORIDE
  3. B amphotericin [Concomitant]
  4. MICAFUNGIN [Concomitant]
     Active Substance: MICAFUNGIN SODIUM
  5. CIPROFLOXACIN [Suspect]
     Active Substance: CIPROFLOXACIN
  6. LINEZOLID [Suspect]
     Active Substance: LINEZOLID
  7. AMIKACIN [Suspect]
     Active Substance: AMIKACIN

REACTIONS (2)
  - Pathogen resistance [Unknown]
  - Drug ineffective [Unknown]
